FAERS Safety Report 14374752 (Version 2)
Quarter: 2018Q1

REPORT INFORMATION
  Report Type: Report from Study
  Country: DE (occurrence: DE)
  Receive Date: 20180111
  Receipt Date: 20180122
  Transmission Date: 20180509
  Serious: Yes (Hospitalization)
  Sender: FDA-Public Use
  Company Number: DE-ROCHE-2051111

PATIENT
  Sex: Female

DRUGS (6)
  1. LENOGRASTIM [Suspect]
     Active Substance: LENOGRASTIM
     Indication: B-CELL LYMPHOMA
     Dosage: ON DAY 4-13
     Route: 058
     Dates: start: 20171111
  2. CYCLOPHOSPHAMIDE. [Suspect]
     Active Substance: CYCLOPHOSPHAMIDE
     Indication: B-CELL LYMPHOMA
     Dosage: LAST DOSE PRIOR TO EVENT ONSET ON 19/DEC/2017?ON DAY 14
     Route: 042
     Dates: start: 20171107
  3. RITUXIMAB. [Suspect]
     Active Substance: RITUXIMAB
     Indication: B-CELL LYMPHOMA
     Dosage: LAST DOSE PRIOR TO EVENT ONSET ON 18/DEC/2017?ON DAY 14
     Route: 042
     Dates: start: 20171107
  4. PREDNISOLONE. [Suspect]
     Active Substance: PREDNISOLONE
     Indication: B-CELL LYMPHOMA
     Dosage: LAST DOSE PRIOR TO EVENT ONSET ON 19/DEC/2017?ON DAY 1-6
     Route: 048
     Dates: start: 20171107
  5. LIPOSOMAL VINCRISTINE [Suspect]
     Active Substance: VINCRISTINE
     Indication: B-CELL LYMPHOMA
     Dosage: LAST DOSE PRIOR TO EVENT ONSET ON 19/DEC/2017?ON DAY 14
     Route: 042
     Dates: start: 20171107
  6. DOXORUBICINE [Suspect]
     Active Substance: DOXORUBICIN
     Indication: B-CELL LYMPHOMA
     Dosage: LAST DOSE PRIOR TO EVENT ONSET ON 19/DEC/2017?ON DAY 14
     Route: 042
     Dates: start: 20171107

REACTIONS (3)
  - Oesophagitis [Recovered/Resolved]
  - Cystitis [Recovered/Resolved]
  - General physical health deterioration [Recovered/Resolved]

NARRATIVE: CASE EVENT DATE: 20180102
